FAERS Safety Report 6478685-8 (Version None)
Quarter: 2009Q4

REPORT INFORMATION
  Report Type: 
  Country: None (occurrence: None)
  Receive Date: 20091207
  Receipt Date: 20091125
  Transmission Date: 20100525
  Serious: Yes (Hospitalization, Other)
  Sender: FDA-Public Use
  Company Number: GB-PFIZER INC-2009284113

PATIENT
  Age: 58 Year
  Sex: Male
  Weight: 75.45 kg

DRUGS (2)
  1. PHENYTOIN SODIUM CAP [Suspect]
     Indication: EPILEPSY
     Dosage: 200 MG, 1X/DAY
     Route: 048
     Dates: start: 19970523
  2. PHENYTOIN SODIUM CAP [Suspect]
     Indication: CONVULSION

REACTIONS (7)
  - ANAEMIA [None]
  - CONVULSION [None]
  - HEADACHE [None]
  - LOSS OF LIBIDO [None]
  - POLLAKIURIA [None]
  - SARCOIDOSIS [None]
  - TEMPORAL LOBE EPILEPSY [None]
